FAERS Safety Report 9286915 (Version 3)
Quarter: 2013Q4

REPORT INFORMATION
  Report Type: Spontaneous
  Country: JP (occurrence: JP)
  Receive Date: 20130513
  Receipt Date: 20131224
  Transmission Date: 20140711
  Serious: Yes (Hospitalization)
  Sender: FDA-Public Use
  Company Number: JP-UCBSA-085440

PATIENT
  Age: 68 Year
  Sex: Female

DRUGS (19)
  1. NEUPRO [Suspect]
     Indication: PARKINSON^S DISEASE
     Route: 061
     Dates: start: 20130410, end: 20130412
  2. NEUPRO [Suspect]
     Indication: PARKINSON^S DISEASE
     Route: 061
     Dates: start: 20130413, end: 20130415
  3. NEUPRO [Suspect]
     Indication: PARKINSON^S DISEASE
     Route: 061
     Dates: start: 20130518, end: 2013
  4. NEUPRO [Suspect]
     Indication: PARKINSON^S DISEASE
     Route: 061
     Dates: start: 2013, end: 2013
  5. ROPINIROLE HYDROCHLORIDE [Concomitant]
     Dates: end: 20130409
  6. ROPINIROLE HYDROCHLORIDE [Concomitant]
     Dates: start: 20130415, end: 20130415
  7. ROPINIROLE HYDROCHLORIDE [Concomitant]
     Dates: start: 20130416, end: 20130517
  8. ROPINIROLE HYDROCHLORIDE [Concomitant]
     Dates: start: 20130518
  9. APOMORPHINE HYDROCHLORIDE HYDRATE [Concomitant]
     Dates: start: 20121002
  10. LEVODOPA_CARBIDOPA HYDRATE [Concomitant]
     Dosage: DOSE: 4 TAB
     Dates: start: 20130318
  11. AMANTADINE HYDROCHLORIDE [Concomitant]
     Dates: start: 20130320
  12. ENTACAPONE [Concomitant]
     Dates: start: 20130318
  13. QUETIAPINE FUMARATE [Concomitant]
     Dates: start: 20130122
  14. ZONISAMIDE [Concomitant]
     Dates: start: 20111213
  15. ELDECALCITOL [Concomitant]
     Dates: start: 20130313
  16. URAPIDIL [Concomitant]
     Dates: start: 20091016
  17. TRAZODONE HYDROCHLORIDE [Concomitant]
     Dates: start: 20040331
  18. LANSOPRAZOLE [Concomitant]
     Dates: start: 20130123
  19. LEVOTHYROXINE SODIUM HYDRATE [Concomitant]
     Dates: start: 20070702

REACTIONS (2)
  - Neuroleptic malignant syndrome [Recovered/Resolved]
  - Drug effect decreased [Recovered/Resolved]
